FAERS Safety Report 7662182-8 (Version None)
Quarter: 2011Q3

REPORT INFORMATION
  Report Type: 
  Country: None (occurrence: None)
  Receive Date: 20110805
  Receipt Date: 20101220
  Transmission Date: 20111222
  Serious: No
  Sender: FDA-Public Use
  Company Number: US-ABBOTT-10P-163-0692815-00

PATIENT
  Sex: Female
  Weight: 93.07 kg

DRUGS (6)
  1. LEVOTHYROXINE SODIUM [Concomitant]
     Indication: PRODUCT USED FOR UNKNOWN INDICATION
     Route: 048
  2. CLONAZEPAM [Concomitant]
     Indication: PRODUCT USED FOR UNKNOWN INDICATION
     Route: 048
  3. NIASPAN [Suspect]
     Dosage: 500MG AT BEDTIME
     Dates: start: 20100801, end: 20101001
  4. NIASPAN [Suspect]
     Indication: DYSLIPIDAEMIA
     Dosage: 1000MG BID
     Route: 048
     Dates: start: 20101001, end: 20101201
  5. MULTI-VITAMINS [Concomitant]
     Indication: PRODUCT USED FOR UNKNOWN INDICATION
     Route: 048
  6. NIASPAN [Suspect]
     Dosage: 1/2 TAB OF 1000MG IN AM AND 1000MG IN PM

REACTIONS (1)
  - HEPATIC ENZYME INCREASED [None]
